FAERS Safety Report 17532402 (Version 1)
Quarter: 2020Q1

REPORT INFORMATION
  Report Type: Report from Study
  Country: None (occurrence: BR)
  Receive Date: 20200312
  Receipt Date: 20200312
  Transmission Date: 20200409
  Serious: Yes (Other)
  Sender: FDA-Public Use
  Company Number: BR-ABBVIE-20K-020-3310212-00

PATIENT
  Age: 44 Year
  Sex: Male
  Weight: 92 kg

DRUGS (1)
  1. HUMIRA [Suspect]
     Active Substance: ADALIMUMAB
     Indication: ANKYLOSING SPONDYLITIS
     Route: 058
     Dates: start: 20161201

REACTIONS (10)
  - Wrong technique in product usage process [Unknown]
  - Application site pain [Unknown]
  - Pain [Unknown]
  - High density lipoprotein decreased [Unknown]
  - Photopsia [Unknown]
  - Unevaluable event [Unknown]
  - Nasopharyngitis [Unknown]
  - Loss of consciousness [Unknown]
  - Blood pressure decreased [Unknown]
  - Product storage error [Unknown]

NARRATIVE: CASE EVENT DATE: 202002
